FAERS Safety Report 7201322-1 (Version None)
Quarter: 2010Q4

REPORT INFORMATION
  Report Type: 
  Country: None (occurrence: None)
  Receive Date: 20101229
  Receipt Date: 20101222
  Transmission Date: 20110411
  Serious: Yes (Death, Hospitalization, Other)
  Sender: FDA-Public Use
  Company Number: PHEH2009US14691

PATIENT
  Sex: Female

DRUGS (5)
  1. EXJADE [Suspect]
     Indication: IRON OVERLOAD
     Dosage: 500 MG, QD
     Route: 048
     Dates: start: 20090205, end: 20090901
  2. DILANTIN [Concomitant]
     Indication: CONVULSION
     Dosage: UNK, UNK
     Route: 048
  3. LANOXIN [Concomitant]
     Indication: ATRIAL FIBRILLATION
     Dosage: UNK, UNK
     Route: 048
  4. ADVAIR [Concomitant]
     Dosage: UNK, UNK
  5. SOLU-MEDROL [Concomitant]
     Indication: HAEMOLYTIC ANAEMIA
     Dosage: UNK, UNK
     Route: 042

REACTIONS (5)
  - CEREBRAL HAEMORRHAGE [None]
  - CONDITION AGGRAVATED [None]
  - DISEASE COMPLICATION [None]
  - GASTROINTESTINAL HAEMORRHAGE [None]
  - HAEMORRHAGE INTRACRANIAL [None]
